FAERS Safety Report 5019020-1 (Version None)
Quarter: 2006Q2

REPORT INFORMATION
  Report Type: 
  Country: None (occurrence: None)
  Receive Date: 20060606
  Receipt Date: 20060531
  Transmission Date: 20061013
  Serious: Yes (Other)
  Sender: FDA-Public Use
  Company Number: 2006/00228

PATIENT
  Sex: Male

DRUGS (1)
  1. AVANDIA [Suspect]
     Dates: end: 20060530

REACTIONS (3)
  - BLINDNESS [None]
  - MACULAR OEDEMA [None]
  - OEDEMA PERIPHERAL [None]
